FAERS Safety Report 14353378 (Version 1)
Quarter: 2018Q1

REPORT INFORMATION
  Report Type: Report from Study
  Country: None (occurrence: US)
  Receive Date: 20180105
  Receipt Date: 20180105
  Transmission Date: 20180509
  Serious: Yes (Other)
  Sender: FDA-Public Use
  Company Number: US-ABBVIE-17K-163-1950629-00

PATIENT
  Sex: Male

DRUGS (4)
  1. HUMIRA [Suspect]
     Active Substance: ADALIMUMAB
     Route: 058
     Dates: start: 201709
  2. HUMIRA [Suspect]
     Active Substance: ADALIMUMAB
     Indication: CROHN^S DISEASE
     Dosage: DAY 1
     Route: 058
     Dates: start: 20170330, end: 20170330
  3. HUMIRA [Suspect]
     Active Substance: ADALIMUMAB
     Route: 058
     Dates: start: 20170427, end: 201709
  4. HUMIRA [Suspect]
     Active Substance: ADALIMUMAB
     Dosage: DAY 15
     Route: 058
     Dates: start: 20170413, end: 20170413

REACTIONS (18)
  - Decreased appetite [Unknown]
  - Nausea [Recovering/Resolving]
  - Injection site pain [Unknown]
  - Melanocytic naevus [Unknown]
  - Insomnia [Not Recovered/Not Resolved]
  - Depressed mood [Not Recovered/Not Resolved]
  - Crohn^s disease [Recovered/Resolved]
  - Injection site bruising [Unknown]
  - Crohn^s disease [Unknown]
  - Anxiety [Recovering/Resolving]
  - Nasopharyngitis [Recovered/Resolved]
  - Drug level below therapeutic [Unknown]
  - Nasal congestion [Not Recovered/Not Resolved]
  - Abdominal distension [Recovering/Resolving]
  - Fear [Unknown]
  - Paranasal sinus discomfort [Not Recovered/Not Resolved]
  - Ileal stenosis [Unknown]
  - Oropharyngeal pain [Recovering/Resolving]

NARRATIVE: CASE EVENT DATE: 2017
